FAERS Safety Report 9399125 (Version 1)
Quarter: 2013Q3

REPORT INFORMATION
  Report Type: Spontaneous
  Country: AU (occurrence: AU)
  Receive Date: 20130715
  Receipt Date: 20130715
  Transmission Date: 20140515
  Serious: Yes (Hospitalization)
  Sender: FDA-Public Use
  Company Number: AU-ROCHE-1247585

PATIENT
  Age: 49 Year
  Sex: Male

DRUGS (3)
  1. PEGASYS [Suspect]
     Indication: PRODUCT USED FOR UNKNOWN INDICATION
     Dosage: 2 TIMES
     Route: 065
     Dates: start: 20120215, end: 20120715
  2. REBETOL [Suspect]
     Indication: PRODUCT USED FOR UNKNOWN INDICATION
     Route: 065
     Dates: start: 20120215, end: 20120715
  3. VICTRELIS [Suspect]
     Indication: PRODUCT USED FOR UNKNOWN INDICATION
     Route: 065
     Dates: end: 20120715

REACTIONS (12)
  - Diarrhoea [Unknown]
  - Fluid overload [Unknown]
  - Vomiting [Unknown]
  - Irritability [Unknown]
  - Lethargy [Unknown]
  - Hepatocellular carcinoma [Unknown]
  - Peritonitis bacterial [Unknown]
  - Oedema [Unknown]
  - Hepatic encephalopathy [Unknown]
  - Ascites [Unknown]
  - Joint swelling [Unknown]
  - Asthenia [Unknown]
